FAERS Safety Report 12603120 (Version 1)
Quarter: 2016Q3

REPORT INFORMATION
  Report Type: Spontaneous
  Country: US (occurrence: US)
  Receive Date: 20160728
  Receipt Date: 20160728
  Transmission Date: 20161109
  Serious: No
  Sender: FDA-Public Use
  Company Number: US-TEVA-674499ACC

PATIENT
  Age: 41 Year
  Sex: Female
  Weight: 47.67 kg

DRUGS (2)
  1. PARAGARD T 380A [Suspect]
     Active Substance: COPPER
     Indication: CONTRACEPTION
     Dates: start: 201106
  2. PROGESTERONE. [Concomitant]
     Active Substance: PROGESTERONE
     Route: 061

REACTIONS (4)
  - Rash [Recovered/Resolved]
  - Rash [Not Recovered/Not Resolved]
  - Dermatitis [Unknown]
  - Hypersensitivity [Unknown]

NARRATIVE: CASE EVENT DATE: 20160701
